FAERS Safety Report 12981431 (Version 2)
Quarter: 2016Q4

REPORT INFORMATION
  Report Type: Spontaneous
  Country: PL (occurrence: PL)
  Receive Date: 20161129
  Receipt Date: 20161202
  Transmission Date: 20170207
  Serious: Yes (Other)
  Sender: FDA-Public Use
  Company Number: PL-ROCHE-1860764

PATIENT
  Age: 67 Year
  Sex: Female

DRUGS (2)
  1. GAZYVARO [Suspect]
     Active Substance: OBINUTUZUMAB
     Indication: CHRONIC LYMPHOCYTIC LEUKAEMIA
     Dosage: 8X 1000 MG
     Route: 065
     Dates: end: 201511
  2. CHLORAMBUCIL [Suspect]
     Active Substance: CHLORAMBUCIL
     Indication: CHRONIC LYMPHOCYTIC LEUKAEMIA
     Dosage: SINGLE DOSE 3X7 TABLETS
     Route: 065
     Dates: end: 201511

REACTIONS (3)
  - Granulocytopenia [Not Recovered/Not Resolved]
  - Platelet count decreased [Recovering/Resolving]
  - Upper respiratory tract infection [Unknown]
